FAERS Safety Report 9609306 (Version 1)
Quarter: 2013Q4

REPORT INFORMATION
  Report Type: Spontaneous
  Country: FR (occurrence: FR)
  Receive Date: 20131009
  Receipt Date: 20131009
  Transmission Date: 20140711
  Serious: Yes (Hospitalization)
  Sender: FDA-Public Use
  Company Number: FR-JNJFOC-20130917327

PATIENT
  Age: 48 Year
  Sex: Male

DRUGS (11)
  1. RISPERDALORO [Suspect]
     Indication: PSYCHOTIC DISORDER
     Route: 048
  2. RISPERDALORO [Suspect]
     Indication: PSYCHOTIC DISORDER
     Route: 048
  3. HYZAAR [Concomitant]
     Indication: HYPERTENSION
     Route: 065
  4. ATENOLOL [Concomitant]
     Indication: HYPERTENSION
     Route: 065
  5. DIFFU K [Concomitant]
     Indication: HYPERTENSION
     Route: 065
  6. LOXEN [Concomitant]
     Indication: HYPERTENSION
     Route: 065
  7. LOXEN [Concomitant]
     Indication: HYPERTENSION
     Route: 065
  8. INSULIN (NOVOMIX 30 FLEXPEN) [Concomitant]
     Indication: TYPE 2 DIABETES MELLITUS
     Route: 065
  9. VALIUM [Concomitant]
     Indication: PSYCHOTIC DISORDER
     Route: 065
  10. VITAMIN B1 [Concomitant]
     Route: 065
  11. VITAMIN B6 [Concomitant]
     Route: 065

REACTIONS (6)
  - Tremor [Recovered/Resolved]
  - Haemorrhagic stroke [Unknown]
  - Motor dysfunction [Unknown]
  - Parkinsonism [Unknown]
  - Hyporeflexia [Unknown]
  - Areflexia [Unknown]
